FAERS Safety Report 8892625 (Version 1)
Quarter: 2012Q4

REPORT INFORMATION
  Report Type: Spontaneous
  Country: US (occurrence: None)
  Receive Date: 20121105
  Receipt Date: 20121105
  Transmission Date: 20130627
  Serious: Yes (Hospitalization)
  Sender: FDA-Public Use
  Company Number: None

PATIENT
  Age: 62 Year
  Sex: Male
  Weight: 71.67 kg

DRUGS (1)
  1. TREANDA [Suspect]
     Indication: WALDENSTROM^S MACROGLOBULINEMIA
     Dosage: DNK  Twice Monthly  IV
     Route: 042
     Dates: start: 20120810, end: 20121027

REACTIONS (3)
  - Atrial fibrillation [None]
  - Atrial flutter [None]
  - Arrhythmia [None]
